FAERS Safety Report 24969364 (Version 1)
Quarter: 2025Q1

REPORT INFORMATION
  Report Type: Spontaneous
  Country: IE (occurrence: IE)
  Receive Date: 20250214
  Receipt Date: 20250214
  Transmission Date: 20250409
  Serious: Yes (Other)
  Sender: ABBVIE
  Company Number: IE-ABBVIE-6133525

PATIENT
  Age: 69 Year
  Sex: Male

DRUGS (2)
  1. VENCLEXTA [Suspect]
     Active Substance: VENETOCLAX
     Indication: Chronic lymphocytic leukaemia
     Route: 048
  2. OBINUTUZUMAB [Concomitant]
     Active Substance: OBINUTUZUMAB
     Indication: Product used for unknown indication

REACTIONS (10)
  - Acute kidney injury [Unknown]
  - Tubulointerstitial nephritis [Unknown]
  - Chronic lymphocytic leukaemia [Unknown]
  - Myocardial ischaemia [Unknown]
  - Hypertension [Unknown]
  - Dyslipidaemia [Unknown]
  - Renal impairment [Unknown]
  - Blood phosphorus increased [Unknown]
  - COVID-19 [Unknown]
  - Lymphadenopathy [Unknown]
